FAERS Safety Report 5952384-0 (Version None)
Quarter: 2008Q4

REPORT INFORMATION
  Report Type: 
  Country: None (occurrence: None)
  Receive Date: 20081113
  Receipt Date: 20081104
  Transmission Date: 20090506
  Serious: Yes (Hospitalization)
  Sender: FDA-Public Use
  Company Number: JP-AMGEN-US195184

PATIENT
  Sex: Female
  Weight: 56 kg

DRUGS (13)
  1. ENBREL [Suspect]
     Indication: RHEUMATOID ARTHRITIS
     Route: 058
     Dates: start: 20060304, end: 20060729
  2. PREDONINE [Suspect]
     Indication: RHEUMATOID ARTHRITIS
     Route: 048
     Dates: start: 19980101
  3. RHEUMATREX [Suspect]
     Indication: DRUG USE FOR UNKNOWN INDICATION
     Route: 048
     Dates: start: 19990101, end: 20060729
  4. RHEUMATREX [Suspect]
     Route: 048
     Dates: start: 20060405, end: 20060729
  5. COTRIM [Concomitant]
     Indication: PNEUMOCYSTIS JIROVECI PNEUMONIA
     Route: 048
     Dates: start: 20040313
  6. COTRIM [Concomitant]
     Indication: INFECTION PROPHYLAXIS
  7. ALENDRONATE SODIUM [Concomitant]
     Indication: OSTEOPOROSIS
     Route: 048
     Dates: start: 20040306
  8. MUCOSTA [Concomitant]
     Indication: GASTRITIS
     Route: 048
     Dates: start: 20031213
  9. LENDORMIN [Concomitant]
     Dosage: UNKNOWN
     Route: 048
  10. FOLIAMIN [Concomitant]
     Route: 048
     Dates: start: 20040703
  11. CLARITHROMYCIN [Concomitant]
     Dosage: UNKNOWN
     Route: 048
  12. MUCOSOLVAN [Concomitant]
     Dosage: UNKNOWN
     Route: 048
  13. ZANTAC [Concomitant]
     Indication: GASTRITIS
     Route: 048
     Dates: start: 20031213

REACTIONS (1)
  - ENTEROCOLITIS [None]
